FAERS Safety Report 21092425 (Version 5)
Quarter: 2022Q4

REPORT INFORMATION
  Report Type: Spontaneous
  Country: US (occurrence: US)
  Receive Date: 20220718
  Receipt Date: 20221228
  Transmission Date: 20230112
  Serious: No
  Sender: FDA-Public Use
  Company Number: US-SA-SAC20220713001943

PATIENT
  Age: 23 Year
  Sex: Female
  Weight: 53 kg

DRUGS (12)
  1. FABRAZYME [Suspect]
     Active Substance: AGALSIDASE BETA
     Indication: Fabry^s disease
     Dosage: 55 MG, QOW
     Route: 042
     Dates: start: 20170104
  2. ALBUTEROL [Concomitant]
     Active Substance: ALBUTEROL
  3. EPINEPHRINE [Concomitant]
     Active Substance: EPINEPHRINE
     Dosage: AUTO INJECTOR
     Route: 065
  4. ZYRTEC [Concomitant]
     Active Substance: CETIRIZINE HYDROCHLORIDE
     Dosage: UNK
     Route: 065
  5. MINERALS\VITAMINS [Concomitant]
     Active Substance: MINERALS\VITAMINS
  6. SODIUM CHLORIDE [Concomitant]
     Active Substance: SODIUM CHLORIDE
  7. SODIUM CHLORIDE [Concomitant]
     Active Substance: SODIUM CHLORIDE
     Dosage: FLUSH SYRINGE
     Route: 065
  8. LIDOCAINE [Concomitant]
     Active Substance: LIDOCAINE
     Dosage: UNK
     Route: 065
  9. PRILOCAINE [Concomitant]
     Active Substance: PRILOCAINE
  10. STERILE WATER [Concomitant]
     Active Substance: WATER
     Dosage: UNK
     Route: 065
  11. ALBUTEROL SULFATE [Concomitant]
     Active Substance: ALBUTEROL SULFATE
  12. SODIUM CHLORIDE [Concomitant]
     Active Substance: SODIUM CHLORIDE
     Dosage: UNK
     Route: 065

REACTIONS (6)
  - Nasopharyngitis [Unknown]
  - Cough [Unknown]
  - Head discomfort [Unknown]
  - Pain in extremity [Unknown]
  - Paraesthesia [Unknown]
  - Hypoaesthesia [Unknown]
